FAERS Safety Report 6636957-8 (Version None)
Quarter: 2010Q1

REPORT INFORMATION
  Report Type: 
  Country: None (occurrence: None)
  Receive Date: 20100316
  Receipt Date: 20100308
  Transmission Date: 20100710
  Serious: Yes (Death, Life-Threatening, Hospitalization)
  Sender: FDA-Public Use
  Company Number: JP-WYE-H13442010

PATIENT
  Age: 63 Year
  Sex: Male

DRUGS (24)
  1. ANCARON [Suspect]
     Indication: VENTRICULAR TACHYCARDIA
     Route: 048
     Dates: start: 20100110, end: 20100115
  2. ANCARON [Suspect]
     Route: 048
     Dates: start: 20070702
  3. PAZUCROSS [Concomitant]
     Dosage: UNKNOWN
     Dates: start: 20100110
  4. MIDAZOLAM HCL [Concomitant]
     Dosage: UNKNOWN
     Dates: start: 20100110
  5. FENTANYL [Concomitant]
     Dosage: UNKNOWN
     Dates: start: 20100110
  6. INOVAN [Concomitant]
     Dosage: UNKNOWN
     Dates: start: 20100110
  7. NICORANDIL [Concomitant]
     Dosage: UNKNOWN
     Dates: start: 20100109, end: 20100115
  8. HEPARIN [Concomitant]
     Dosage: UNKNOWN
     Dates: start: 20100109
  9. HANP [Concomitant]
     Dosage: UNKNOWN
     Dates: start: 20100109
  10. ACETYLSALICYLIC ACID SRT [Concomitant]
     Dosage: UNKNOWN
     Dates: start: 20100110, end: 20100126
  11. ALDACTONE [Concomitant]
     Dosage: UNKNOWN
     Dates: start: 20100110
  12. TANATRIL [Concomitant]
     Dosage: UNKNOWN
     Dates: start: 20100110
  13. TANATRIL [Concomitant]
     Dosage: UNKNOWN
     Dates: start: 20100110
  14. LIPITOR [Concomitant]
     Dosage: UNKNOWN
     Dates: start: 20100110
  15. TAKEPRON [Concomitant]
     Dosage: UNKNOWN
     Dates: start: 20100111
  16. ARTIST [Concomitant]
     Dosage: UNKNOWN
     Dates: start: 20100114
  17. RENIVACE [Concomitant]
     Dosage: UNKNOWN
     Dates: start: 20100110
  18. LASIX [Concomitant]
     Dosage: UNKNOWN
     Dates: start: 20100110
  19. SIGMART [Concomitant]
     Dosage: UNKNOWN
     Dates: start: 20100115
  20. PLETAL [Concomitant]
     Dosage: UNKNOWN
     Dates: start: 20100123, end: 20100126
  21. MUCODYNE [Concomitant]
     Dosage: UNKNOWN
     Dates: start: 20100123
  22. MUCOSOLVAN [Concomitant]
     Dosage: UNKNOWN
     Dates: start: 20100123
  23. SOTALOL HCL [Concomitant]
     Dosage: UNKNOWN
     Dates: start: 20100130
  24. VANCOMYCIN [Concomitant]
     Dosage: UNKNOWN
     Dates: start: 20100110

REACTIONS (6)
  - ACUTE RESPIRATORY DISTRESS SYNDROME [None]
  - CARDIAC FAILURE CONGESTIVE [None]
  - CONDITION AGGRAVATED [None]
  - HEPATIC FUNCTION ABNORMAL [None]
  - INTERSTITIAL LUNG DISEASE [None]
  - RENAL FAILURE [None]
